FAERS Safety Report 16560883 (Version 1)
Quarter: 2019Q3

REPORT INFORMATION
  Report Type: Spontaneous
  Country: US (occurrence: US)
  Receive Date: 20190711
  Receipt Date: 20190711
  Transmission Date: 20191004
  Serious: Yes (Other)
  Sender: FDA-Public Use
  Company Number: US-BAUSCH-BL-2019-019442

PATIENT
  Sex: Female

DRUGS (2)
  1. BRIMONIDINE [Suspect]
     Active Substance: BRIMONIDINE TARTRATE
     Indication: GLAUCOMA
     Route: 065
  2. PILOCARPINE. [Suspect]
     Active Substance: PILOCARPINE
     Indication: GLAUCOMA
     Route: 065

REACTIONS (7)
  - Eye disorder [Unknown]
  - Visual impairment [Unknown]
  - Cataract operation complication [Not Recovered/Not Resolved]
  - Cataract [Unknown]
  - Ocular toxicity [Unknown]
  - Vision blurred [Unknown]
  - Mydriasis [Unknown]
